FAERS Safety Report 18038501 (Version 10)
Quarter: 2020Q4

REPORT INFORMATION
  Report Type: Spontaneous
  Country: US (occurrence: US)
  Receive Date: 20200717
  Receipt Date: 20201224
  Transmission Date: 20210113
  Serious: Yes (Hospitalization)
  Sender: FDA-Public Use
  Company Number: US-VERTEX PHARMACEUTICALS-2020-013279

PATIENT
  Age: 37 Year
  Sex: Female
  Weight: 73 kg

DRUGS (51)
  1. TRIKAFTA [Suspect]
     Active Substance: ELEXACAFTOR\IVACAFTOR\TEZACAFTOR
     Indication: CYSTIC FIBROSIS
     Dosage: 2 TABS (100 MG ELEXACAFTOR/ 50 MG TEZACAFTOR/ 75 MG IVACAFTOR) AM AND 1 TAB (150MG IVACAFTOR) PM
     Route: 048
     Dates: start: 20200311, end: 20200616
  2. CALCIUM + VIT D [Concomitant]
     Active Substance: CALCIUM\VITAMIN D
     Dosage: 500 MILLIGRAM, BID
  3. FEXOFENADINE [Concomitant]
     Active Substance: FEXOFENADINE HYDROCHLORIDE
     Dosage: 180 MILLIGRAM, QD
     Route: 048
  4. IBUPROFEN. [Concomitant]
     Active Substance: IBUPROFEN
  5. INSULIN [Concomitant]
     Active Substance: INSULIN NOS
  6. DICYCLOMINE [DICYCLOVERINE HYDROCHLORIDE] [Concomitant]
     Active Substance: DICYCLOMINE HYDROCHLORIDE
     Dosage: 20 MG, TID
     Route: 048
  7. CREON [Concomitant]
     Active Substance: PANCRELIPASE AMYLASE\PANCRELIPASE LIPASE\PANCRELIPASE PROTEASE
  8. HYPERSAL [Concomitant]
     Active Substance: SODIUM CHLORIDE
  9. MYCOPHENOLATE MOFETIL. [Concomitant]
     Active Substance: MYCOPHENOLATE MOFETIL
     Dosage: 4 CAP(S), 2 TIMES A DAY AT 9 AM AND 9 PM
     Route: 048
  10. FUROSEMIDE. [Concomitant]
     Active Substance: FUROSEMIDE
     Dosage: 20 MILLIGRAM, QD
     Route: 048
     Dates: start: 202010
  11. ONDANSETRON [Concomitant]
     Active Substance: ONDANSETRON
     Indication: NAUSEA
     Dosage: 4 MG
     Dates: start: 20111109
  12. LANTUS [Concomitant]
     Active Substance: INSULIN GLARGINE
     Indication: FATIGUE
  13. VALGANCICLOVIR. [Concomitant]
     Active Substance: VALGANCICLOVIR
     Dosage: 2 TAB(S) NCE A DAY AT 9 PM
     Route: 048
  14. CLOTRIMAZOLE. [Concomitant]
     Active Substance: CLOTRIMAZOLE
     Dosage: 3 TIMES A DAY
     Route: 048
  15. DAPSONE. [Concomitant]
     Active Substance: DAPSONE
  16. PREDNISONE. [Concomitant]
     Active Substance: PREDNISONE
     Dosage: 25 MILLIGRAM
     Dates: start: 20201011, end: 20201028
  17. PREDNISONE. [Concomitant]
     Active Substance: PREDNISONE
     Dosage: 10 MILLIGRAM
     Dates: end: 20201121
  18. POLYETHYLENE GLYCOL [MACROGOL] [Concomitant]
     Active Substance: POLYETHYLENE GLYCOLS
     Dosage: 17 GRAM, TID
     Route: 048
  19. TOBRAMYCIN. [Concomitant]
     Active Substance: TOBRAMYCIN
     Dosage: 112 MICROGRAM, 2 TIMES A DAY
  20. DORNASE ALFA. [Concomitant]
     Active Substance: DORNASE ALFA
     Dosage: 2.5 MILLIGRAM, QD
  21. ALBUTEROL [SALBUTAMOL] [Concomitant]
     Active Substance: ALBUTEROL
  22. LASIX [Concomitant]
     Active Substance: FUROSEMIDE
     Indication: DIZZINESS
     Dosage: SMALL DOSE
     Dates: start: 20200930
  23. TYLENOL [Concomitant]
     Active Substance: ACETAMINOPHEN
     Dosage: 2 TABLETS AS NEEDED
     Route: 048
  24. TRIKAFTA [Suspect]
     Active Substance: ELEXACAFTOR\IVACAFTOR\TEZACAFTOR
     Dosage: (2 MORNING TABS), REDUCED DOSE
     Route: 048
     Dates: start: 20200811, end: 20200824
  25. PREDNISONE. [Concomitant]
     Active Substance: PREDNISONE
     Dosage: 15 MILLIGRAM
     Dates: end: 20201113
  26. OMEPRAZOLE. [Concomitant]
     Active Substance: OMEPRAZOLE
     Dosage: 20 MILLIGRAM, BID
     Route: 048
     Dates: start: 20121203
  27. TOBRAMYCIN. [Concomitant]
     Active Substance: TOBRAMYCIN
     Dosage: 28 MG, 4 CAP
  28. PANCRELIPASE. [Concomitant]
     Active Substance: PANCRELIPASE
     Dosage: 1-4 TABS PER MEAL, 1 PER SNACK
  29. POTASSIUM CHLORIDE. [Concomitant]
     Active Substance: POTASSIUM CHLORIDE
     Dosage: 20 MILLIEQUIVALENT, QD
  30. ADVAIR HFA [Concomitant]
     Active Substance: FLUTICASONE PROPIONATE\SALMETEROL XINAFOATE
  31. FLUCONAZOLE. [Concomitant]
     Active Substance: FLUCONAZOLE
     Dosage: 2 TABS ONCE A DAY AT 9 AM
     Route: 048
     Dates: end: 20201220
  32. TRAMADOL. [Concomitant]
     Active Substance: TRAMADOL
     Dosage: 1 TABLET EVERY 8 HOUR, AS NEEDED
  33. HYDROXYZINE HYDROCHLORIDE. [Concomitant]
     Active Substance: HYDROXYZINE HYDROCHLORIDE
     Dosage: 1 TABLET EVERY 8 HOURS AS NEEDED
     Route: 048
  34. VENLAFAXINE [Concomitant]
     Active Substance: VENLAFAXINE HYDROCHLORIDE
     Dosage: 1 CAP ONCE A DAY AT 9 AM
     Route: 048
     Dates: start: 202003
  35. LASIX [Concomitant]
     Active Substance: FUROSEMIDE
     Indication: FATIGUE
  36. POTASSIUM CHLORIDE. [Concomitant]
     Active Substance: POTASSIUM CHLORIDE
     Dosage: 20 MILLIEQUIVALENT, BID, 2 DAYS
  37. LANTUS [Concomitant]
     Active Substance: INSULIN GLARGINE
     Indication: ABDOMINAL PAIN
  38. TACROLIMUS. [Concomitant]
     Active Substance: TACROLIMUS
     Dosage: 5 CAP(S) 2 TIMES A DAY AT 9 AM AND 9 PM.
     Route: 048
  39. PENTAMIDINE [Concomitant]
     Active Substance: PENTAMIDINE
  40. PREDNISONE. [Concomitant]
     Active Substance: PREDNISONE
     Dosage: 5 MILLIGRAM
     Dates: end: 20201121
  41. MONTELUKAST [Concomitant]
     Active Substance: MONTELUKAST SODIUM
     Dosage: 10 MILLIGRAM, QD
     Route: 048
     Dates: start: 20121205
  42. CEFTAZ [Concomitant]
     Dosage: UNK
     Route: 042
     Dates: start: 201901
  43. LANTUS [Concomitant]
     Active Substance: INSULIN GLARGINE
     Indication: DIZZINESS
     Dosage: UNK
     Dates: start: 20200930
  44. LASIX [Concomitant]
     Active Substance: FUROSEMIDE
     Indication: ABDOMINAL PAIN
  45. FLONASE [Concomitant]
     Active Substance: FLUTICASONE PROPIONATE
  46. POLYETHYLENE GLYCOL 3350. [Concomitant]
     Active Substance: POLYETHYLENE GLYCOL 3350
     Dosage: 17 GRAM, 2 TIMES A DAY
     Route: 048
  47. PREDNISONE. [Concomitant]
     Active Substance: PREDNISONE
     Dosage: 50 MILLIGRAM
     Dates: start: 20200930
  48. PREDNISONE. [Concomitant]
     Active Substance: PREDNISONE
     Dosage: 20 MILLIGRAM
     Dates: end: 20201105
  49. FLUTICASONE + SALMETEROL [Concomitant]
     Active Substance: FLUTICASONE FUROATE\SALMETEROL XINAFOATE
     Dosage: INHALE 1 PUFF INTO LUNGS, BID
  50. MICAFUNGIN. [Concomitant]
     Active Substance: MICAFUNGIN SODIUM
     Dosage: UNK
     Dates: start: 20201116
  51. VALCYTE [Concomitant]
     Active Substance: VALGANCICLOVIR HYDROCHLORIDE

REACTIONS (17)
  - Dizziness [Unknown]
  - Distal intestinal obstruction syndrome [Recovering/Resolving]
  - Nausea [Unknown]
  - Ascites [Unknown]
  - Dehydration [Unknown]
  - Bacillus bacteraemia [Unknown]
  - Depressed mood [Not Recovered/Not Resolved]
  - Drug-induced liver injury [Recovering/Resolving]
  - Cough [Not Recovered/Not Resolved]
  - Blood creatinine increased [Recovered/Resolved]
  - Mental status changes [Unknown]
  - Cystic fibrosis [Unknown]
  - Fatigue [Unknown]
  - Pneumonia [Unknown]
  - Abdominal pain [Unknown]
  - Duodenal ulcer [Unknown]
  - Sinus disorder [Recovering/Resolving]

NARRATIVE: CASE EVENT DATE: 2020
